FAERS Safety Report 4675240-7 (Version None)
Quarter: 2005Q2

REPORT INFORMATION
  Report Type: 
  Country: None (occurrence: None)
  Receive Date: 20050527
  Receipt Date: 20050401
  Transmission Date: 20051028
  Serious: Yes (Death, Hospitalization, Other)
  Sender: FDA-Public Use
  Company Number: PHFR2005GB01391

PATIENT
  Age: 38 Year
  Sex: Male

DRUGS (1)
  1. CLOZARIL [Suspect]
     Indication: SCHIZOPHRENIA
     Dosage: 400MG/DAY
     Route: 048
     Dates: start: 20050131

REACTIONS (6)
  - ANKLE FRACTURE [None]
  - FALL [None]
  - IMMOBILE [None]
  - OBESITY [None]
  - PULMONARY EMBOLISM [None]
  - SEDATION [None]
